FAERS Safety Report 8651542 (Version 3)
Quarter: 2012Q4

REPORT INFORMATION
  Report Type: 
  Country: JP (occurrence: JP)
  Receive Date: 20120706
  Receipt Date: 20121015
  Transmission Date: 20130627
  Serious: Yes (Death, Hospitalization)
  Sender: FDA-Public Use
  Company Number: JP-ELI_LILLY_AND_COMPANY-JP201205005813

PATIENT
  Age: 60 Year
  Sex: Male

DRUGS (1)
  1. HUMULIN REGULAR [Suspect]
     Route: 058

REACTIONS (2)
  - Pneumonia aspiration [Fatal]
  - White blood cell count decreased [Not Recovered/Not Resolved]
